FAERS Safety Report 9728038 (Version 1)
Quarter: 2013Q4

REPORT INFORMATION
  Report Type: Spontaneous
  Country: US (occurrence: None)
  Receive Date: 20131203
  Receipt Date: 20131203
  Transmission Date: 20140711
  Serious: No
  Sender: FDA-Public Use
  Company Number: None

PATIENT
  Sex: Male
  Weight: 27.22 kg

DRUGS (1)
  1. SINGULAIR [Suspect]
     Indication: MULTIPLE ALLERGIES
     Route: 048

REACTIONS (7)
  - Personality change [None]
  - Anxiety [None]
  - Crying [None]
  - Thinking abnormal [None]
  - Emotional disorder [None]
  - Depression [None]
  - Feeling abnormal [None]
